FAERS Safety Report 23281717 (Version 1)
Quarter: 2023Q4

REPORT INFORMATION
  Report Type: Report from Study
  Country: MX (occurrence: MX)
  Receive Date: 20231211
  Receipt Date: 20231211
  Transmission Date: 20240110
  Serious: Yes (Hospitalization)
  Sender: FDA-Public Use
  Company Number: MX-002147023-NVSC2023MX235491

PATIENT
  Sex: Male

DRUGS (1)
  1. TASIGNA [Suspect]
     Active Substance: NILOTINIB
     Indication: Chronic myeloid leukaemia
     Dosage: UNK
     Route: 048

REACTIONS (9)
  - Visual impairment [Unknown]
  - Diplopia [Unknown]
  - Vertigo [Unknown]
  - Headache [Unknown]
  - Paralysis [Unknown]
  - Speech disorder [Unknown]
  - Strabismus [Unknown]
  - Movement disorder [Unknown]
  - Malaise [Unknown]
